FAERS Safety Report 7417804-3 (Version None)
Quarter: 2011Q2

REPORT INFORMATION
  Report Type: 
  Country: None (occurrence: None)
  Receive Date: 20110415
  Receipt Date: 20110405
  Transmission Date: 20111010
  Serious: Yes (Other)
  Sender: FDA-Public Use
  Company Number: DE-BAYER-2011-029210

PATIENT
  Age: 29 Year
  Sex: Female
  Weight: 52 kg

DRUGS (1)
  1. YASMIN [Suspect]
     Indication: CONTRACEPTION
     Dosage: 1 DF, QD
     Dates: start: 20110402, end: 20110404

REACTIONS (6)
  - HEART RATE INCREASED [None]
  - MIGRAINE [None]
  - PAIN IN EXTREMITY [None]
  - ANGINA PECTORIS [None]
  - VOMITING [None]
  - NAUSEA [None]
